FAERS Safety Report 4569488-X (Version None)
Quarter: 2005Q1

REPORT INFORMATION
  Report Type: 
  Country: None (occurrence: None)
  Receive Date: 20050201
  Receipt Date: 20050114
  Transmission Date: 20050727
  Serious: Yes (Hospitalization)
  Sender: FDA-Public Use
  Company Number: F03200500009

PATIENT
  Age: 59 Year
  Sex: Male
  Weight: 92.0802 kg

DRUGS (9)
  1. ELOXATIN [Suspect]
     Indication: COLORECTAL CANCER
     Dosage: 117 MG OTHER- INTRAVENOUS NOS
     Route: 042
     Dates: start: 20041229, end: 20041229
  2. ELOXATIN [Suspect]
     Indication: METASTASES TO LIVER
     Dosage: 117 MG OTHER- INTRAVENOUS NOS
     Route: 042
     Dates: start: 20041229, end: 20041229
  3. LEUCOVORIN - SOLUTION [Suspect]
     Indication: COLORECTAL CANCER
     Dosage: INTRAVENOUS NOS
     Route: 042
  4. LEUCOVORIN - SOLUTION [Suspect]
     Indication: METASTASES TO LIVER
     Dosage: INTRAVENOUS NOS
     Route: 042
  5. FLOXURIDINE [Suspect]
     Indication: COLORECTAL CANCER
  6. FLOXURIDINE [Suspect]
     Indication: METASTASES TO LIVER
  7. PANTOPRAZOLE ZODIUM [Concomitant]
  8. PROCHLORPERAZINE EDISYLATE [Concomitant]
  9. URSODEOXYCHOLIC ACID [Concomitant]

REACTIONS (4)
  - ALANINE AMINOTRANSFERASE INCREASED [None]
  - ASPARTATE AMINOTRANSFERASE INCREASED [None]
  - BLOOD ALKALINE PHOSPHATASE INCREASED [None]
  - CHOLESTASIS [None]
